FAERS Safety Report 4918249-8 (Version None)
Quarter: 2006Q1

REPORT INFORMATION
  Report Type: 
  Country: None (occurrence: None)
  Receive Date: 20060214
  Receipt Date: 20060207
  Transmission Date: 20060701
  Serious: Yes (Hospitalization, Other)
  Sender: FDA-Public Use
  Company Number: HQWYE162103JAN06

PATIENT
  Age: 66 Year
  Sex: Female

DRUGS (5)
  1. ADVIL [Suspect]
     Indication: INFECTION
     Route: 048
     Dates: start: 20051101, end: 20050101
  2. ADVIL [Suspect]
     Indication: MYALGIA
     Route: 048
     Dates: start: 20051101, end: 20050101
  3. ADVIL [Suspect]
     Indication: PYREXIA
     Route: 048
     Dates: start: 20051101, end: 20050101
  4. SIMVASTATIN [Suspect]
     Dosage: 20 MG COATED TABLET DAILY
     Dates: end: 20051201
  5. OROCAL (CALCIUM CARBONATE) [Concomitant]

REACTIONS (17)
  - ANAEMIA [None]
  - COAGULATION FACTOR VIII LEVEL INCREASED [None]
  - COAGULATION FACTOR X LEVEL DECREASED [None]
  - DERMATITIS BULLOUS [None]
  - EPISTAXIS [None]
  - FIBRIN D DIMER INCREASED [None]
  - GENERAL PHYSICAL HEALTH DETERIORATION [None]
  - HAEMORRHAGIC DISORDER [None]
  - INFECTION [None]
  - MYALGIA [None]
  - NECROSIS [None]
  - PROTHROMBIN LEVEL DECREASED [None]
  - PROTHROMBIN TIME PROLONGED [None]
  - PURPURA [None]
  - PYELONEPHRITIS [None]
  - PYREXIA [None]
  - URINARY TRACT INFECTION [None]
